FAERS Safety Report 16869775 (Version 1)
Quarter: 2019Q3

REPORT INFORMATION
  Report Type: Spontaneous
  Country: CN (occurrence: CN)
  Receive Date: 20190930
  Receipt Date: 20190930
  Transmission Date: 20191005
  Serious: Yes (Hospitalization)
  Sender: FDA-Public Use
  Company Number: CN-PFIZER INC-2019418441

PATIENT
  Age: 68 Year
  Sex: Female

DRUGS (2)
  1. VIZIMPRO [Suspect]
     Active Substance: DACOMITINIB
     Indication: LUNG CANCER METASTATIC
     Dosage: 45 MG, 1X/DAY
     Route: 048
     Dates: start: 20190918, end: 20190921
  2. OSIMERTINIB. [Suspect]
     Active Substance: OSIMERTINIB
     Indication: LUNG INFECTION
     Dosage: UNK
     Dates: end: 20190919

REACTIONS (10)
  - Confusional state [Unknown]
  - Asthma [Unknown]
  - Pyrexia [Unknown]
  - Dyspnoea [Unknown]
  - Muscular weakness [Unknown]
  - Paralysis [Unknown]
  - Cough [Unknown]
  - Dysstasia [Unknown]
  - Gait disturbance [Unknown]
  - Diarrhoea [Unknown]

NARRATIVE: CASE EVENT DATE: 20190919
